FAERS Safety Report 8419308-8 (Version None)
Quarter: 2012Q2

REPORT INFORMATION
  Report Type: 
  Country: None (occurrence: None)
  Receive Date: 20120607
  Receipt Date: 20120604
  Transmission Date: 20120825
  Serious: No
  Sender: FDA-Public Use
  Company Number: US-PFIZER INC-2012134213

PATIENT
  Sex: Female
  Weight: 61.224 kg

DRUGS (4)
  1. CELEBREX [Suspect]
     Indication: OSTEOARTHRITIS
     Dosage: 200 MG, 1X/DAY
     Route: 048
     Dates: start: 20120101, end: 20120604
  2. ESTROGENS CONJUGATED [Concomitant]
     Dosage: UNK
     Route: 061
  3. CELEBREX [Suspect]
     Dosage: UNK
     Route: 048
     Dates: start: 20120602, end: 20120604
  4. SYNTHROID [Concomitant]
     Dosage: UNK

REACTIONS (1)
  - PRURITUS [None]
